FAERS Safety Report 25086341 (Version 1)
Quarter: 2025Q1

REPORT INFORMATION
  Report Type: Spontaneous
  Country: PL (occurrence: PL)
  Receive Date: 20250317
  Receipt Date: 20250317
  Transmission Date: 20250408
  Serious: Yes (Hospitalization, Other)
  Sender: NOVARTIS
  Company Number: PL-002147023-NVSC2025PL042566

PATIENT
  Age: 43 Year
  Sex: Male

DRUGS (3)
  1. FINGOLIMOD [Suspect]
     Active Substance: FINGOLIMOD
     Indication: Multiple sclerosis
     Route: 065
     Dates: start: 201202
  2. FINGOLIMOD [Suspect]
     Active Substance: FINGOLIMOD
     Route: 065
     Dates: start: 201404
  3. FINGOLIMOD [Suspect]
     Active Substance: FINGOLIMOD
     Route: 065
     Dates: start: 201407, end: 201407

REACTIONS (18)
  - Balance disorder [Unknown]
  - Muscular weakness [Unknown]
  - Quadriparesis [Unknown]
  - Anal sphincter atony [Unknown]
  - Demyelination [Unknown]
  - Optic neuritis [Unknown]
  - Paraparesis [Unknown]
  - Multiple sclerosis relapse [Unknown]
  - Paresis [Unknown]
  - Visual acuity reduced [Unknown]
  - Expanded disability status scale [Unknown]
  - Condition aggravated [Unknown]
  - Malaise [Unknown]
  - Hypoaesthesia [Unknown]
  - Hypertonic bladder [Unknown]
  - Nasopharyngitis [Unknown]
  - Abdominal discomfort [Unknown]
  - Paraesthesia [Unknown]

NARRATIVE: CASE EVENT DATE: 20120101
